FAERS Safety Report 5023180-6 (Version None)
Quarter: 2006Q2

REPORT INFORMATION
  Report Type: 
  Country: None (occurrence: None)
  Receive Date: 20060428
  Receipt Date: 20060227
  Transmission Date: 20061013
  Serious: No
  Sender: FDA-Public Use
  Company Number: 012143

PATIENT
  Age: 56 Year
  Sex: Female

DRUGS (2)
  1. PRIALT [Suspect]
     Indication: POST LAMINECTOMY SYNDROME
     Dosage: 0.06 UG, ONCE/HOUR, INTRATHECAL
     Route: 037
     Dates: start: 20060217
  2. HYDROMORPHONE HCL [Concomitant]

REACTIONS (4)
  - DYSPNOEA [None]
  - LOCALISED OEDEMA [None]
  - OEDEMA PERIPHERAL [None]
  - WEIGHT INCREASED [None]
